FAERS Safety Report 18252297 (Version 1)
Quarter: 2020Q3

REPORT INFORMATION
  Report Type: Spontaneous
  Country: US (occurrence: US)
  Receive Date: 20200910
  Receipt Date: 20200910
  Transmission Date: 20201103
  Serious: No
  Sender: FDA-Public Use
  Company Number: US-FARMAPROD-202006-0761

PATIENT
  Age: 78 Year
  Sex: Male

DRUGS (15)
  1. RETAINE PM [Concomitant]
     Active Substance: MINERAL OIL\PETROLATUM
     Dosage: 20%?80%
  2. TIMOLOL MALEATE. [Concomitant]
     Active Substance: TIMOLOL MALEATE
  3. DORZOLAMIDE HCL [Concomitant]
     Active Substance: DORZOLAMIDE HYDROCHLORIDE
  4. VITAMIN?B [Concomitant]
  5. RETAINE [Concomitant]
     Active Substance: HYPROMELLOSE 2910 (4000 MPA.S)
     Dosage: 0,5%?0,5%, DROPERETTE
  6. BRIMONIDINE TARTRATE. [Concomitant]
     Active Substance: BRIMONIDINE TARTRATE
  7. TESTOSTERONE CYPIONATE. [Concomitant]
     Active Substance: TESTOSTERONE CYPIONATE
  8. METOPROLOL SUCCINATE. [Concomitant]
     Active Substance: METOPROLOL SUCCINATE
  9. OXERVATE [Suspect]
     Active Substance: CENEGERMIN-BKBJ
     Indication: NEUROTROPHIC KERATOPATHY
     Route: 047
     Dates: start: 20200526
  10. ASPIRIN 81 [Concomitant]
     Active Substance: ASPIRIN
  11. LISINOPRIL. [Concomitant]
     Active Substance: LISINOPRIL
  12. ATORVASTATIN CALCIUM. [Concomitant]
     Active Substance: ATORVASTATIN CALCIUM
  13. AMILORIDE?HYDROCHLOROTHIAZIDE [Concomitant]
     Active Substance: AMILORIDE HYDROCHLORIDE\HYDROCHLOROTHIAZIDE
  14. VALACYCLOVIR [Concomitant]
     Active Substance: VALACYCLOVIR HYDROCHLORIDE
  15. EZETIMIBE. [Concomitant]
     Active Substance: EZETIMIBE

REACTIONS (9)
  - Eye pain [Unknown]
  - Product use issue [Unknown]
  - Intentional product misuse [Unknown]
  - Eye irritation [Unknown]
  - Eye inflammation [Unknown]
  - Eyelid irritation [Unknown]
  - Paranasal sinus hypersecretion [Unknown]
  - Eyelid pain [Unknown]
  - Foreign body sensation in eyes [Unknown]

NARRATIVE: CASE EVENT DATE: 20200528
